FAERS Safety Report 17103860 (Version 1)
Quarter: 2019Q4

REPORT INFORMATION
  Report Type: Spontaneous
  Country: US (occurrence: US)
  Receive Date: 20191203
  Receipt Date: 20191203
  Transmission Date: 20200122
  Serious: No
  Sender: FDA-Public Use
  Company Number: US-AMGEN-USASP2019199602

PATIENT
  Age: 64 Year
  Sex: Female

DRUGS (3)
  1. AIMOVIG [Suspect]
     Active Substance: ERENUMAB-AOOE
     Indication: MIGRAINE
     Dosage: 70 MILLIGRAM, QMO
     Route: 065
     Dates: start: 2019
  2. FIORINAL [ACETYLSALICYLIC ACID;BUTALBITAL;CAFFEINE;PHENACETIN] [Concomitant]
     Dosage: UNK
  3. CYPROHEPTADINE. [Concomitant]
     Active Substance: CYPROHEPTADINE
     Indication: APPETITE DISORDER
     Dosage: UNK
     Dates: start: 2019

REACTIONS (4)
  - Injection site pain [Unknown]
  - Therapeutic product effect delayed [Unknown]
  - Headache [Not Recovered/Not Resolved]
  - Injection site haemorrhage [Recovered/Resolved]

NARRATIVE: CASE EVENT DATE: 2019
